FAERS Safety Report 14186321 (Version 1)
Quarter: 2017Q4

REPORT INFORMATION
  Report Type: Spontaneous
  Country: FR (occurrence: FR)
  Receive Date: 20171114
  Receipt Date: 20171114
  Transmission Date: 20180321
  Serious: Yes (Death)
  Sender: FDA-Public Use
  Company Number: FR-PFIZER INC-2017485150

PATIENT
  Age: 32 Year
  Sex: Female

DRUGS (1)
  1. CYTOTEC [Suspect]
     Active Substance: MISOPROSTOL
     Indication: LABOUR INDUCTION
     Dosage: 100 UG, SINGLE
     Route: 067
     Dates: start: 20120912, end: 20120912

REACTIONS (5)
  - Malaise [Fatal]
  - Anaphylactoid syndrome of pregnancy [Fatal]
  - Pain [Fatal]
  - Product use in unapproved indication [Fatal]
  - Dizziness [Fatal]

NARRATIVE: CASE EVENT DATE: 20120912
